FAERS Safety Report 17824729 (Version 2)
Quarter: 2020Q2

REPORT INFORMATION
  Report Type: Spontaneous
  Country: US (occurrence: US)
  Receive Date: 20200526
  Receipt Date: 20200623
  Transmission Date: 20200714
  Serious: No
  Sender: FDA-Public Use
  Company Number: US-JNJFOC-20200511485

PATIENT
  Age: 18 Year
  Sex: Male
  Weight: 88.53 kg

DRUGS (1)
  1. TREMFYA [Suspect]
     Active Substance: GUSELKUMAB
     Indication: PRODUCT USED FOR UNKNOWN INDICATION
     Route: 065
     Dates: start: 201908

REACTIONS (3)
  - Device issue [Unknown]
  - Product dose omission [Unknown]
  - Product dispensing error [Unknown]

NARRATIVE: CASE EVENT DATE: 202003
